FAERS Safety Report 5563400-2 (Version None)
Quarter: 2007Q4

REPORT INFORMATION
  Report Type: 
  Country: None (occurrence: None)
  Receive Date: 20071217
  Receipt Date: 20070404
  Transmission Date: 20080405
  Serious: No
  Sender: FDA-Public Use
  Company Number: US-ASTRAZENECA-2007UW06725

PATIENT
  Age: 68 Year
  Sex: Male
  Weight: 88.5 kg

DRUGS (2)
  1. CRESTOR [Suspect]
     Route: 048
     Dates: start: 20070101, end: 20070301
  2. PRILOSEC OTC [Concomitant]
     Dates: start: 20020101

REACTIONS (3)
  - RASH PRURITIC [None]
  - SKIN LESION [None]
  - URINE ABNORMALITY [None]
